FAERS Safety Report 8985969 (Version 5)
Quarter: 2014Q3

REPORT INFORMATION
  Report Type: Report from Study
  Country: RU (occurrence: RU)
  Receive Date: 20121226
  Receipt Date: 20140918
  Transmission Date: 20150326
  Serious: Yes (Hospitalization)
  Sender: FDA-Public Use
  Company Number: RU-ASTRAZENECA-2012SE95089

PATIENT
  Age: 20008 Day
  Sex: Male

DRUGS (11)
  1. LOSARTAN [Concomitant]
     Active Substance: LOSARTAN
     Indication: HYPERTENSION
     Route: 048
  2. BISOPROLOL [Concomitant]
     Active Substance: BISOPROLOL
     Indication: MYOCARDIAL INFARCTION
     Route: 048
  3. TORSEMIDE. [Suspect]
     Active Substance: TORSEMIDE
     Indication: CARDIAC FAILURE CHRONIC
     Route: 048
     Dates: start: 20121215
  4. METFORMINE [Concomitant]
     Active Substance: METFORMIN HYDROCHLORIDE
     Indication: TYPE 2 DIABETES MELLITUS
     Route: 048
     Dates: start: 20120208, end: 20130207
  5. AZD6140 [Suspect]
     Active Substance: TICAGRELOR
     Indication: CORONARY ARTERY DISEASE
     Route: 048
     Dates: start: 20111226, end: 20130918
  6. ASA [Suspect]
     Active Substance: ASPIRIN
     Route: 048
     Dates: end: 20121128
  7. ATORVASTATIN [Suspect]
     Active Substance: ATORVASTATIN
     Indication: MYOCARDIAL INFARCTION
     Route: 048
     Dates: start: 20130208
  8. TORSEMIDE. [Suspect]
     Active Substance: TORSEMIDE
     Indication: CARDIAC FAILURE CHRONIC
     Route: 048
     Dates: start: 20120426, end: 20121206
  9. SPIRONOLACTONE. [Concomitant]
     Active Substance: SPIRONOLACTONE
     Indication: CARDIAC FAILURE CHRONIC
     Route: 048
     Dates: end: 20130225
  10. ATORVASTATIN [Suspect]
     Active Substance: ATORVASTATIN
     Indication: MYOCARDIAL INFARCTION
     Route: 048
     Dates: start: 20120730, end: 20121214
  11. ASA [Suspect]
     Active Substance: ASPIRIN
     Route: 048
     Dates: start: 20121214

REACTIONS (1)
  - Gouty arthritis [Recovered/Resolved]

NARRATIVE: CASE EVENT DATE: 20121128
